FAERS Safety Report 21137917 (Version 1)
Quarter: 2022Q3

REPORT INFORMATION
  Report Type: Spontaneous
  Country: US (occurrence: US)
  Receive Date: 20220727
  Receipt Date: 20220727
  Transmission Date: 20221027
  Serious: No
  Sender: FDA-Public Use
  Company Number: US-PFIZER INC-PV202200030761

PATIENT
  Sex: Female

DRUGS (1)
  1. PAXLOVID [Suspect]
     Active Substance: NIRMATRELVIR\RITONAVIR
     Indication: COVID-19 treatment
     Dosage: UNK( PAXLOVID 300MG)

REACTIONS (4)
  - Dysgeusia [Unknown]
  - Product taste abnormal [Unknown]
  - Therapy cessation [Unknown]
  - Incorrect dose administered [Unknown]
